FAERS Safety Report 21871641 (Version 1)
Quarter: 2023Q1

REPORT INFORMATION
  Report Type: Spontaneous
  Country: BR (occurrence: BR)
  Receive Date: 20230117
  Receipt Date: 20230117
  Transmission Date: 20230417
  Serious: Yes (Other)
  Sender: FDA-Public Use
  Company Number: BR-TAKEDA-2023TUS003637

PATIENT
  Age: 59 Year
  Sex: Male

DRUGS (5)
  1. PANTOPRAZOLE [Suspect]
     Active Substance: PANTOPRAZOLE
     Dosage: 20 MILLIGRAM
     Route: 065
  2. VONOPRAZAN FUMARATE [Suspect]
     Active Substance: VONOPRAZAN FUMARATE
     Indication: Gastrooesophageal reflux disease
     Dosage: 20 MILLIGRAM, QD
     Route: 065
  3. VONOPRAZAN FUMARATE [Suspect]
     Active Substance: VONOPRAZAN FUMARATE
     Indication: Hiatus hernia
     Dosage: 10 MILLIGRAM, QD
     Route: 065
  4. VONOPRAZAN FUMARATE [Suspect]
     Active Substance: VONOPRAZAN FUMARATE
     Indication: Erosive oesophagitis
  5. VONOPRAZAN FUMARATE [Suspect]
     Active Substance: VONOPRAZAN FUMARATE
     Indication: Gastritis erosive

REACTIONS (15)
  - Gastritis erosive [Unknown]
  - Erosive oesophagitis [Recovered/Resolved]
  - Incorrect product administration duration [Unknown]
  - Inappropriate schedule of product administration [Unknown]
  - Prescription drug used without a prescription [Unknown]
  - Regurgitation [Unknown]
  - Throat clearing [Unknown]
  - Dysphonia [Unknown]
  - Snoring [Recovering/Resolving]
  - Hiatus hernia [Unknown]
  - Dyspepsia [Recovered/Resolved]
  - Chest pain [Unknown]
  - Cough [Unknown]
  - Fatigue [Recovering/Resolving]
  - Abdominal distension [Unknown]
